FAERS Safety Report 7112796-9 (Version None)
Quarter: 2010Q4

REPORT INFORMATION
  Report Type: 
  Country: None (occurrence: None)
  Receive Date: 20101119
  Receipt Date: 20101111
  Transmission Date: 20110411
  Serious: Yes (Other)
  Sender: FDA-Public Use
  Company Number: US-B.I. PHARMACEUTICALS,INC./RIDGEFIELD-2010-BP-12660BP

PATIENT
  Sex: Female

DRUGS (2)
  1. DULCOLAX [Suspect]
     Indication: CONSTIPATION
     Dosage: 10 MG
     Route: 048
     Dates: start: 20101107, end: 20101107
  2. BIRTH CONTROL PILLS [Concomitant]
     Indication: CONTRACEPTION

REACTIONS (11)
  - BONE GRAFT [None]
  - CONTUSION [None]
  - CONVULSION [None]
  - DEFORMITY [None]
  - ENDODONTIC PROCEDURE [None]
  - HAEMATOMA [None]
  - IMPAIRED WORK ABILITY [None]
  - LOSS OF CONSCIOUSNESS [None]
  - PAIN [None]
  - SYNCOPE [None]
  - TOOTH LOSS [None]
